FAERS Safety Report 20845571 (Version 3)
Quarter: 2023Q1

REPORT INFORMATION
  Report Type: Spontaneous
  Country: DE (occurrence: DE)
  Receive Date: 20220518
  Receipt Date: 20230309
  Transmission Date: 20230417
  Serious: Yes (Death, Other)
  Sender: FDA-Public Use
  Company Number: DE-GE HEALTHCARE-2022CSU003075

PATIENT
  Age: 32 Year
  Sex: Female

DRUGS (8)
  1. OMNISCAN [Suspect]
     Active Substance: GADODIAMIDE
     Indication: Magnetic resonance imaging
     Dosage: UNK UNK, SINGLE
     Route: 065
     Dates: start: 200509, end: 200509
  2. OMNISCAN [Suspect]
     Active Substance: GADODIAMIDE
     Indication: Arterial thrombosis
     Dosage: UNK UNK, SINGLE
     Route: 065
     Dates: start: 200509, end: 200509
  3. OMNISCAN [Suspect]
     Active Substance: GADODIAMIDE
     Indication: Pulmonary embolism
     Dosage: UNK UNK, SINGLE
     Route: 065
     Dates: start: 200601, end: 200601
  4. OMNISCAN [Suspect]
     Active Substance: GADODIAMIDE
     Dosage: UNK UNK, SINGLE
     Route: 065
     Dates: start: 200601, end: 200601
  5. OMNISCAN [Suspect]
     Active Substance: GADODIAMIDE
     Dosage: UNK UNK, SINGLE
     Route: 065
     Dates: start: 200603, end: 200603
  6. OMNISCAN [Suspect]
     Active Substance: GADODIAMIDE
     Dosage: UNK UNK, SINGLE
     Route: 065
     Dates: start: 200612, end: 200612
  7. GADOBUTROL [Suspect]
     Active Substance: GADOBUTROL
     Indication: Magnetic resonance imaging
     Dosage: UNK, SINGLE
     Route: 065
     Dates: start: 200703, end: 200703
  8. GADOBUTROL [Suspect]
     Active Substance: GADOBUTROL
     Dosage: UNK, SINGLE
     Route: 065
     Dates: start: 200703, end: 200703

REACTIONS (9)
  - Cardiac arrest [Fatal]
  - Muscle fibrosis [Fatal]
  - Arrhythmia [Fatal]
  - Contrast media deposition [Unknown]
  - Skin fibrosis [Unknown]
  - Extremity necrosis [Unknown]
  - Skin ulcer [Unknown]
  - Nephrogenic systemic fibrosis [Unknown]
  - Joint contracture [Unknown]

NARRATIVE: CASE EVENT DATE: 20070201
